FAERS Safety Report 8942767 (Version 1)
Quarter: 2012Q4

REPORT INFORMATION
  Report Type: Spontaneous
  Country: GB (occurrence: None)
  Receive Date: 20121123
  Receipt Date: 20121123
  Transmission Date: 20130627
  Serious: Yes (Hospitalization, Other)
  Sender: FDA-Public Use
  Company Number: 2012-16564

PATIENT
  Age: 81 Year
  Sex: Male
  Weight: 63 kg

DRUGS (1)
  1. GABAPENTIN (UNKNOWN) [Suspect]
     Route: 048
     Dates: start: 20110630, end: 20110630

REACTIONS (14)
  - Thinking abnormal [None]
  - Victim of crime [None]
  - Speech disorder [None]
  - Mental impairment [None]
  - Amnesia [None]
  - Confusional state [None]
  - Fatigue [None]
  - Vomiting [None]
  - Pyrexia [None]
  - Bradycardia [None]
  - Hypotension [None]
  - Headache [None]
  - Arteriosclerosis [None]
  - Cerebrovascular accident [None]
